FAERS Safety Report 15974996 (Version 1)
Quarter: 2019Q1

REPORT INFORMATION
  Report Type: Spontaneous
  Country: US (occurrence: US)
  Receive Date: 20190218
  Receipt Date: 20190218
  Transmission Date: 20190418
  Serious: Yes (Hospitalization, Other)
  Sender: FDA-Public Use
  Company Number: US-PFIZER INC-2019057464

PATIENT
  Age: 73 Year
  Sex: Male
  Weight: 67.59 kg

DRUGS (3)
  1. TIKOSYN [Suspect]
     Active Substance: DOFETILIDE
     Indication: VENTRICULAR TACHYCARDIA
     Dosage: 125 UG, 2X/DAY
     Route: 048
     Dates: start: 201710
  2. TIKOSYN [Suspect]
     Active Substance: DOFETILIDE
     Indication: ARRHYTHMIA
  3. TIKOSYN [Suspect]
     Active Substance: DOFETILIDE
     Indication: ATRIAL FIBRILLATION

REACTIONS (3)
  - Cough [Not Recovered/Not Resolved]
  - Sinus disorder [Unknown]
  - Ventricular tachycardia [Recovering/Resolving]
